FAERS Safety Report 4469601-9 (Version None)
Quarter: 2004Q4

REPORT INFORMATION
  Report Type: 
  Country: None (occurrence: None)
  Receive Date: 20041008
  Receipt Date: 20040927
  Transmission Date: 20050328
  Serious: Yes (Death)
  Sender: FDA-Public Use
  Company Number: US-ABBOTT-04P-163-0275155-00

PATIENT
  Sex: Male

DRUGS (1)
  1. DEPAKOTE ER 250MG [Suspect]
     Indication: DRUG USE FOR UNKNOWN INDICATION
     Route: 048

REACTIONS (2)
  - POLYTRAUMATISM [None]
  - ROAD TRAFFIC ACCIDENT [None]
